FAERS Safety Report 4989831-7 (Version None)
Quarter: 2006Q2

REPORT INFORMATION
  Report Type: 
  Country: None (occurrence: None)
  Receive Date: 20060428
  Receipt Date: 20060419
  Transmission Date: 20061013
  Serious: Yes (Life-Threatening, Hospitalization, Disabling)
  Sender: FDA-Public Use
  Company Number: OSCN-NO-0303S-0081

PATIENT
  Age: 55 Year
  Sex: Female

DRUGS (1)
  1. OMNISCAN [Suspect]
     Indication: RENAL CYST
     Dosage: 50 ML, SINGLE DOSE, I.V.
     Route: 042
     Dates: start: 20020108, end: 20020108

REACTIONS (18)
  - ALOPECIA [None]
  - ARTHRALGIA [None]
  - ASTHENIA [None]
  - BURNING SENSATION [None]
  - DIZZINESS [None]
  - HAEMODIALYSIS [None]
  - HYPERSENSITIVITY [None]
  - IMMOBILIZATION PROLONGED [None]
  - MYALGIA [None]
  - NAUSEA [None]
  - PAIN [None]
  - PALPITATIONS [None]
  - PANNICULITIS [None]
  - PNEUMONIA [None]
  - PULMONARY EMBOLISM [None]
  - RENAL FAILURE [None]
  - SUBCUTANEOUS NODULE [None]
  - VOMITING [None]
